FAERS Safety Report 5173641-4 (Version None)
Quarter: 2006Q4

REPORT INFORMATION
  Report Type: 
  Country: None (occurrence: None)
  Receive Date: 20061214
  Receipt Date: 20061205
  Transmission Date: 20070319
  Serious: Yes (Other)
  Sender: FDA-Public Use
  Company Number: FR-BRISTOL-MYERS SQUIBB COMPANY-13602560

PATIENT
  Age: 70 Year
  Sex: Male

DRUGS (5)
  1. FOSINOPRIL SODIUM [Suspect]
     Indication: HYPERTENSION
     Route: 048
     Dates: start: 19990101
  2. LASIX [Suspect]
     Indication: HYPERTENSION
     Route: 048
     Dates: start: 19790101
  3. CELECTOL [Concomitant]
     Indication: HYPERTENSION
     Route: 048
     Dates: start: 19790101
  4. MEDIATENSYL [Concomitant]
     Indication: HYPERTENSION
     Route: 048
     Dates: start: 20040101
  5. NEORECORMON [Concomitant]
     Indication: NEPHROGENIC ANAEMIA
     Route: 058

REACTIONS (2)
  - HYPERKALAEMIA [None]
  - RENAL FAILURE [None]
